FAERS Safety Report 10580685 (Version 1)
Quarter: 2014Q4

REPORT INFORMATION
  Report Type: Spontaneous
  Country: US (occurrence: US)
  Receive Date: 20141113
  Receipt Date: 20141113
  Transmission Date: 20150529
  Serious: Yes (Other)
  Sender: FDA-Public Use
  Company Number: US-CIPLA LTD.-2014US01729

PATIENT

DRUGS (10)
  1. DEXAMETHASONE. [Concomitant]
     Active Substance: DEXAMETHASONE
     Indication: SUPPORTIVE CARE
     Dosage: 12 MG, ORALLY
  2. DEXAMETHASONE. [Concomitant]
     Active Substance: DEXAMETHASONE
     Dosage: 8 MG ORALLY
  3. IRINOTECAN [Suspect]
     Active Substance: IRINOTECAN
     Indication: PANCREATIC CARCINOMA
     Dosage: 165 MG/M2 INTRAVENOUS PIGGYBACK DURING 90 MINS
  4. 5-FLUOROURACIL [Suspect]
     Active Substance: FLUOROURACIL
     Indication: PANCREATIC CARCINOMA
     Dosage: 2400 MG/M2, CONTINUOUS INFUSION DURING 46 HOURSCONTINUOUS
  5. FOSAPREPITANT [Concomitant]
     Active Substance: FOSAPREPITANT
     Indication: SUPPORTIVE CARE
     Dosage: 150 MG, 30 MIN BEFORE CHEMOTHERAPY
  6. PEGFILGRASTIM [Concomitant]
     Active Substance: PEGFILGRASTIM
     Indication: SUPPORTIVE CARE
     Dosage: 6 MG, DAY 4 (24 H AFTER CESSATION OF 5-FLUOROURACIL PUMP)
  7. RADIATION [Suspect]
     Active Substance: RADIATION THERAPY
     Indication: PANCREATIC CARCINOMA
     Dosage: 36 GY IN 15 DAILY FRACTIONS
  8. GEMCITABINE [Suspect]
     Active Substance: GEMCITABINE\GEMCITABINE HYDROCHLORIDE
     Indication: PANCREATIC CARCINOMA
     Dosage: 1,000 MG/M2/WEEK
  9. OXALIPLATIN. [Suspect]
     Active Substance: OXALIPLATIN
     Indication: PANCREATIC CARCINOMA
     Dosage: 85 MG/M 2 INTRAVENOUS PIGGYBACK DURING  2 TO 4 HOURS
  10. PALONOSETRON [Concomitant]
     Active Substance: PALONOSETRON
     Indication: SUPPORTIVE CARE
     Dosage: 0.25 MG, IV PUSH DURING 3 MINS

REACTIONS (1)
  - Gastric perforation [Unknown]
